FAERS Safety Report 7591733-7 (Version None)
Quarter: 2011Q3

REPORT INFORMATION
  Report Type: 
  Country: None (occurrence: None)
  Receive Date: 20110701
  Receipt Date: 20110701
  Transmission Date: 20111222
  Serious: Yes (Life-Threatening, Other)
  Sender: FDA-Public Use
  Company Number: None

PATIENT

DRUGS (2)
  1. SAPHRIS [Suspect]
     Dosage: 10 MGS 1 TME DAILY OTHER
  2. SEROQUEL [Suspect]
     Dosage: 200MG 1 TIME DAILY OTHER

REACTIONS (7)
  - SYNCOPE [None]
  - HYPERTENSION [None]
  - CONFUSIONAL STATE [None]
  - HEART RATE IRREGULAR [None]
  - SUICIDE ATTEMPT [None]
  - DIZZINESS [None]
  - ANXIETY [None]
